FAERS Safety Report 5237934-4 (Version None)
Quarter: 2007Q1

REPORT INFORMATION
  Report Type: 
  Country: None (occurrence: None)
  Receive Date: 20070209
  Receipt Date: 20070202
  Transmission Date: 20070707
  Serious: Yes (Death)
  Sender: FDA-Public Use
  Company Number: 430002E07DEU

PATIENT
  Age: 70 Year
  Sex: Male

DRUGS (5)
  1. NOVANTRONE [Suspect]
     Dosage: INTRAVENOUS (NOT OTHERWISE SPECIFIED)
     Route: 042
     Dates: start: 20050620, end: 20050625
  2. GEMTUZUMAB OZOGAMICIN (GEMTUZUMAB OZOGAMICIN) [Suspect]
     Dosage: INTRAVENOUS NOT (OTHERWISE SPECIFIED)
     Route: 042
     Dates: start: 20050607, end: 20050607
  3. CYTARABINE [Suspect]
     Dosage: INTRAVENOUS (NOT OTHERWISE SPECIFIED)
     Dates: start: 20050620, end: 20050626
  4. VP-16 (ETOPOSIDE /00511901/) [Suspect]
     Dosage: INTRAVENOUS (NOT OTHERWISE SPECIFIED)
     Route: 042
     Dates: start: 20050620, end: 20050626
  5. PREDNISONE /00044701/ [Concomitant]

REACTIONS (1)
  - MYOCARDIAL INFARCTION [None]
